FAERS Safety Report 20338515 (Version 1)
Quarter: 2022Q1

REPORT INFORMATION
  Report Type: Spontaneous
  Country: US (occurrence: None)
  Receive Date: 20220116
  Receipt Date: 20220116
  Transmission Date: 20220424
  Serious: No
  Sender: FDA-Public Use
  Company Number: 2022A012977

PATIENT
  Sex: Male

DRUGS (2)
  1. BYDUREON BCISE [Suspect]
     Active Substance: EXENATIDE
     Indication: Diabetes mellitus
     Dosage: 2MG/ML ONCE A WEEK
     Route: 058
  2. BYDUREON [Concomitant]
     Active Substance: EXENATIDE
     Route: 065

REACTIONS (2)
  - Oropharyngeal pain [Unknown]
  - Device issue [Unknown]
